FAERS Safety Report 8080318-4 (Version None)
Quarter: 2012Q1

REPORT INFORMATION
  Report Type: 
  Country: None (occurrence: None)
  Receive Date: 20120130
  Receipt Date: 20120125
  Transmission Date: 20120608
  Serious: Yes (Other)
  Sender: FDA-Public Use
  Company Number: JP-PFIZER INC-2012021975

PATIENT
  Age: 70 Year
  Sex: Female

DRUGS (1)
  1. ZOSYN [Suspect]
     Indication: PNEUMONIA
     Route: 041

REACTIONS (1)
  - APLASTIC ANAEMIA [None]
